FAERS Safety Report 6044183-9 (Version None)
Quarter: 2009Q1

REPORT INFORMATION
  Report Type: 
  Country: None (occurrence: None)
  Receive Date: 20090115
  Receipt Date: 20090115
  Transmission Date: 20090719
  Serious: Yes (Disabling)
  Sender: FDA-Public Use
  Company Number: None

PATIENT
  Sex: Female

DRUGS (9)
  1. AREDIA [Suspect]
     Indication: MULTIPLE MYELOMA
     Dosage: 90 MG MONTHLY IV
     Route: 042
     Dates: start: 20040101, end: 20051201
  2. RADIATION THERAPY [Concomitant]
  3. THALIDOMIDE [Concomitant]
  4. NORVASC [Concomitant]
  5. DECADRON [Concomitant]
  6. CALCITRIOL [Concomitant]
  7. PROCRIT [Concomitant]
  8. ATENOLO [Concomitant]
  9. COUMADIN [Concomitant]

REACTIONS (5)
  - BONE DISORDER [None]
  - FISTULA DISCHARGE [None]
  - GINGIVITIS [None]
  - JAW DISORDER [None]
  - PAIN IN JAW [None]
